FAERS Safety Report 6673797-8 (Version None)
Quarter: 2010Q2

REPORT INFORMATION
  Report Type: 
  Country: None (occurrence: None)
  Receive Date: 20100407
  Receipt Date: 20100325
  Transmission Date: 20101027
  Serious: Yes (Hospitalization)
  Sender: FDA-Public Use
  Company Number: 233143J10USA

PATIENT
  Age: 55 Year
  Sex: Female

DRUGS (4)
  1. REBIF [Suspect]
     Indication: MULTIPLE SCLEROSIS
     Dosage: 22 MCG, 3 IN 1 WK, SUBCUTANEOUS NOT REPORTED, NOT REPORTED, SUBCUTANEOUS
     Route: 058
     Dates: start: 20070501, end: 20100201
  2. REBIF [Suspect]
     Indication: MULTIPLE SCLEROSIS
     Dosage: 22 MCG, 3 IN 1 WK, SUBCUTANEOUS NOT REPORTED, NOT REPORTED, SUBCUTANEOUS
     Route: 058
     Dates: start: 20100324
  3. NEBULIZER (ALL OTHER THERAPEUTIC PRODUCTS) [Suspect]
     Indication: DYSPNOEA
     Dosage: NOT REPORTED, NOT REPORTED, RESPIRATORY (INHALATION)
     Route: 055
     Dates: start: 20100319
  4. VALIUM [Concomitant]

REACTIONS (6)
  - CONDITION AGGRAVATED [None]
  - DYSPNOEA [None]
  - HEART RATE INCREASED [None]
  - PALPITATIONS [None]
  - TREMOR [None]
  - UNEVALUABLE EVENT [None]
